FAERS Safety Report 23754365 (Version 1)
Quarter: 2024Q2

REPORT INFORMATION
  Report Type: Spontaneous
  Country: CA (occurrence: CA)
  Receive Date: 20240418
  Receipt Date: 20240418
  Transmission Date: 20240716
  Serious: Yes (Hospitalization, Other)
  Sender: FDA-Public Use
  Company Number: CA-NOVITIUMPHARMA-2024CANVP00511

PATIENT
  Age: 14 Year
  Sex: Male

DRUGS (6)
  1. DEXAMETHASONE [Suspect]
     Active Substance: DEXAMETHASONE
     Indication: Malignant glioma
  2. DEXAMETHASONE [Suspect]
     Active Substance: DEXAMETHASONE
  3. TEMOZOLOMIDE [Concomitant]
     Active Substance: TEMOZOLOMIDE
     Indication: Malignant glioma
     Dosage: FOR 1 CYCLE
  4. LOMUSTINE [Concomitant]
     Active Substance: LOMUSTINE
     Indication: Malignant glioma
     Dosage: FOR 1 CYCLE
  5. TRAMETINIB [Concomitant]
     Active Substance: TRAMETINIB
     Indication: Malignant glioma
  6. BEVACIZUMAB [Concomitant]
     Active Substance: BEVACIZUMAB
     Indication: Malignant glioma

REACTIONS (3)
  - Rebound effect [Unknown]
  - Diabetes mellitus [Unknown]
  - Osteonecrosis [Unknown]
